FAERS Safety Report 17504534 (Version 1)
Quarter: 2020Q1

REPORT INFORMATION
  Report Type: Spontaneous
  Country: US (occurrence: US)
  Receive Date: 20200305
  Receipt Date: 20200305
  Transmission Date: 20200409
  Serious: No
  Sender: FDA-Public Use
  Company Number: US-SA-2020SA053905

PATIENT
  Age: 24 Year
  Sex: Female

DRUGS (5)
  1. FLUOCINONIDE. [Concomitant]
     Active Substance: FLUOCINONIDE
  2. ELIDEL [Concomitant]
     Active Substance: PIMECROLIMUS
  3. DUPIXENT [Suspect]
     Active Substance: DUPILUMAB
     Indication: DERMATITIS ATOPIC
     Dosage: 1 DF, QOW
     Route: 058
  4. PROZAC [Concomitant]
     Active Substance: FLUOXETINE HYDROCHLORIDE
  5. AVEENO ANTI-ITCH [CALAMINE;PRAMOCAINE HYDROCHLORIDE] [Concomitant]

REACTIONS (3)
  - Dry skin [Unknown]
  - Product dose omission [Unknown]
  - Pruritus [Unknown]
